FAERS Safety Report 10162512 (Version 1)
Quarter: 2014Q2

REPORT INFORMATION
  Report Type: Spontaneous
  Country: US (occurrence: US)
  Receive Date: 20140509
  Receipt Date: 20140509
  Transmission Date: 20141212
  Serious: Yes (Hospitalization)
  Sender: FDA-Public Use
  Company Number: US-PFIZER INC-2014124890

PATIENT
  Age: 76 Year
  Sex: Female
  Weight: 113.38 kg

DRUGS (23)
  1. REVATIO [Suspect]
     Indication: PULMONARY HYPERTENSION
     Dosage: 20 MG, 3X/DAY
     Route: 048
     Dates: start: 201310
  2. INSULIN [Concomitant]
     Indication: DIABETES MELLITUS
     Dosage: UNK
  3. ADVAIR [Concomitant]
     Dosage: UNK
  4. ALBUTEROL [Concomitant]
     Dosage: UNK
  5. ALPHAGAN P [Concomitant]
     Dosage: UNK
  6. CARDIZEM [Concomitant]
     Dosage: UNK
  7. CARVEDILOL [Concomitant]
     Dosage: UNK
  8. COLACE [Concomitant]
     Dosage: UNK
  9. KLOR-CON [Concomitant]
     Dosage: UNK
  10. LASIX [Concomitant]
     Dosage: UNK
  11. LIPITOR [Concomitant]
     Dosage: UNK
  12. LOSARTAN [Concomitant]
     Dosage: UNK
  13. LYRICA [Concomitant]
     Dosage: UNK
  14. MAGNESIUM [Concomitant]
     Dosage: UNK
  15. METOCLOPRAMIDE [Concomitant]
     Dosage: UNK
  16. PREDNISONE [Concomitant]
     Dosage: UNK
     Route: 047
  17. PREVACID [Concomitant]
     Dosage: UNK
  18. PROAIR HFA [Concomitant]
     Dosage: UNK
  19. SPIRONOLACTONE [Concomitant]
     Dosage: UNK
  20. VITAMIN D [Concomitant]
     Dosage: UNK
  21. TORSEMIDE [Concomitant]
     Dosage: UNK
  22. WARFARIN [Concomitant]
     Dosage: UNK
  23. XANAX [Concomitant]
     Dosage: UNK

REACTIONS (2)
  - Dehydration [Unknown]
  - Blood potassium increased [Unknown]
